FAERS Safety Report 17558526 (Version 1)
Quarter: 2020Q1

REPORT INFORMATION
  Report Type: Spontaneous
  Country: GB (occurrence: GB)
  Receive Date: 20200318
  Receipt Date: 20200318
  Transmission Date: 20200409
  Serious: Yes (Other)
  Sender: FDA-Public Use
  Company Number: GB-ANIPHARMA-2020-UK-000058

PATIENT
  Age: 42 Year
  Sex: Female

DRUGS (5)
  1. ASPIRIN. [Concomitant]
     Active Substance: ASPIRIN
     Dosage: UNK
     Route: 065
  2. RIZATRIPTAN. [Concomitant]
     Active Substance: RIZATRIPTAN
     Dosage: UNK
     Route: 065
  3. CANDESARTAN. [Suspect]
     Active Substance: CANDESARTAN
     Indication: MIGRAINE
     Dosage: 16 MG UNK
     Route: 048
     Dates: start: 20190501, end: 20200108
  4. SYNDOL ^MERRELL-NATIONAL^ [Concomitant]
     Dosage: UNK
     Route: 065
  5. BOTOX [Suspect]
     Active Substance: ONABOTULINUMTOXINA
     Dosage: UNK
     Route: 065

REACTIONS (8)
  - Myalgia [Unknown]
  - Influenza like illness [Unknown]
  - Muscle injury [Unknown]
  - Blood potassium increased [Unknown]
  - Chest pain [Unknown]
  - Palpitations [Unknown]
  - Off label use [Recovered/Resolved]
  - Arthralgia [Unknown]

NARRATIVE: CASE EVENT DATE: 20190501
